FAERS Safety Report 4367639-3 (Version None)
Quarter: 2004Q2

REPORT INFORMATION
  Report Type: 
  Country: None (occurrence: None)
  Receive Date: 20040601
  Receipt Date: 20040521
  Transmission Date: 20050107
  Serious: Yes (Death)
  Sender: FDA-Public Use
  Company Number: BE-MERCK-0405BEL00032

PATIENT
  Age: 78 Year
  Sex: Female
  Weight: 70 kg

DRUGS (3)
  1. AMPHOTERICIN B [Concomitant]
     Indication: ANTIFUNGAL PROPHYLAXIS
     Route: 042
     Dates: start: 20031228, end: 20031230
  2. CANCIDAS [Suspect]
     Indication: CANDIDIASIS
     Route: 042
     Dates: start: 20031231, end: 20031231
  3. CANCIDAS [Suspect]
     Route: 042
     Dates: start: 20040101, end: 20040104

REACTIONS (1)
  - DEATH [None]
